FAERS Safety Report 5701171-7 (Version None)
Quarter: 2008Q2

REPORT INFORMATION
  Report Type: 
  Country: None (occurrence: None)
  Receive Date: 20080410
  Receipt Date: 20080331
  Transmission Date: 20081010
  Serious: Yes (Other)
  Sender: FDA-Public Use
  Company Number: JP-PFIZER INC-2008020837

PATIENT
  Sex: Male
  Weight: 48 kg

DRUGS (2)
  1. UNASYN [Suspect]
     Indication: PNEUMONIA
     Route: 042
     Dates: start: 20080219, end: 20080221
  2. SUNRYTHM [Suspect]
     Indication: ARRHYTHMIA
     Route: 048
     Dates: start: 20080218, end: 20080221

REACTIONS (1)
  - PURPURA [None]
